FAERS Safety Report 25523865 (Version 3)
Quarter: 2025Q3

REPORT INFORMATION
  Report Type: Spontaneous
  Country: GB (occurrence: GB)
  Receive Date: 20250707
  Receipt Date: 20250815
  Transmission Date: 20251020
  Serious: Yes (Other)
  Sender: MYLAN
  Company Number: GB-MYLANLABS-2025M1047483

PATIENT
  Age: 51 Year
  Sex: Male
  Weight: 93.3 kg

DRUGS (33)
  1. CLOZARIL [Suspect]
     Active Substance: CLOZAPINE
     Indication: Schizophrenia
     Dosage: 400 MILLIGRAM, QD (ONCE DAILY)
     Dates: start: 20160805
  2. CLOZARIL [Suspect]
     Active Substance: CLOZAPINE
     Indication: Schizophrenia
     Dosage: 25 MILLIGRAM, PM (ONCE A DAY IN THE EVENING)
     Dates: start: 20250612
  3. CLOZARIL [Suspect]
     Active Substance: CLOZAPINE
     Dosage: 25 MILLIGRAM, PM (ONCE A DAY IN THE EVENING)
     Dates: start: 20250617
  4. CLOZARIL [Suspect]
     Active Substance: CLOZAPINE
     Dosage: 25 MILLIGRAM, PM (ONCE A DAY IN THE EVENING)
     Dates: start: 20250618
  5. CLOZARIL [Suspect]
     Active Substance: CLOZAPINE
     Dosage: 25 MILLIGRAM, PM (ONCE A DAY IN THE EVENING)
     Dates: start: 20250619
  6. CLOZARIL [Suspect]
     Active Substance: CLOZAPINE
     Indication: Schizophrenia
     Dosage: UNK, PM (IN THE EVENING)
     Dates: start: 20250617
  7. CLOZARIL [Suspect]
     Active Substance: CLOZAPINE
     Dosage: UNK, PM (IN THE EVENING)
     Dates: start: 20250618
  8. CLOZARIL [Suspect]
     Active Substance: CLOZAPINE
     Dosage: UNK, PM (IN THE EVENING)
     Dates: start: 20250619
  9. SERTRALINE [Concomitant]
     Active Substance: SERTRALINE HYDROCHLORIDE
     Dosage: 100 MILLIGRAM, AM (ONCE A DAY IN THE MORNING)
     Dates: start: 20241227
  10. SERTRALINE [Concomitant]
     Active Substance: SERTRALINE HYDROCHLORIDE
     Dosage: 100 MILLIGRAM, AM (ONCE A DAY IN THE MORNING)
     Dates: start: 20250617
  11. SERTRALINE [Concomitant]
     Active Substance: SERTRALINE HYDROCHLORIDE
     Dosage: 100 MILLIGRAM, AM (ONCE A DAY IN THE MORNING)
     Dates: start: 20250618
  12. SERTRALINE [Concomitant]
     Active Substance: SERTRALINE HYDROCHLORIDE
     Dosage: 100 MILLIGRAM, AM (ONCE A DAY IN THE MORNING)
     Dates: start: 20250619
  13. SERTRALINE [Concomitant]
     Active Substance: SERTRALINE HYDROCHLORIDE
     Dosage: 100 MILLIGRAM, AM (ONCE A DAY IN THE MORNING)
     Dates: start: 20250620
  14. EPILIM [Concomitant]
     Active Substance: VALPROATE SODIUM
     Dosage: 800 MILLIGRAM, BID (TWICE A DAY)
     Dates: start: 20241112
  15. EPILIM [Concomitant]
     Active Substance: VALPROATE SODIUM
     Dosage: 800 MILLIGRAM, BID (TWICE A DAY)
     Dates: start: 20250617
  16. EPILIM [Concomitant]
     Active Substance: VALPROATE SODIUM
     Dosage: 800 MILLIGRAM, BID (TWICE A DAY)
     Dates: start: 20250618
  17. EPILIM [Concomitant]
     Active Substance: VALPROATE SODIUM
     Dosage: 800 MILLIGRAM, BID (TWICE A DAY)
     Dates: start: 20250619
  18. EPILIM [Concomitant]
     Active Substance: VALPROATE SODIUM
     Dosage: 800 MILLIGRAM, BID (TWICE A DAY)
     Dates: start: 20250620
  19. BISOPROLOL [Concomitant]
     Active Substance: BISOPROLOL
     Dosage: 1.25 MILLIGRAM, PM (ONCE A DAY IN THE EVENING)
     Dates: start: 20240422
  20. BISOPROLOL [Concomitant]
     Active Substance: BISOPROLOL
     Dosage: 1.25 MILLIGRAM, PM (ONCE A DAY IN THE EVENING)
     Dates: start: 20250617
  21. BISOPROLOL [Concomitant]
     Active Substance: BISOPROLOL
     Dosage: 1.25 MILLIGRAM, PM (ONCE A DAY IN THE EVENING)
     Dates: start: 20250618
  22. BISOPROLOL [Concomitant]
     Active Substance: BISOPROLOL
     Dosage: 1.25 MILLIGRAM, PM (ONCE A DAY IN THE EVENING)
     Dates: start: 20250619
  23. BISACODYL [Concomitant]
     Active Substance: BISACODYL
     Dosage: 20 MILLIGRAM, PM (ONCE A DAY IN THE EVENING)
     Dates: start: 20250411
  24. BISACODYL [Concomitant]
     Active Substance: BISACODYL
     Dosage: 20 MILLIGRAM, PM (ONCE A DAY IN THE EVENING)
     Dates: start: 20250617
  25. BISACODYL [Concomitant]
     Active Substance: BISACODYL
     Dosage: 20 MILLIGRAM, PM (ONCE A DAY IN THE EVENING)
     Dates: start: 20250618
  26. BISACODYL [Concomitant]
     Active Substance: BISACODYL
     Dosage: 20 MILLIGRAM, PM (ONCE A DAY IN THE EVENING)
     Dates: start: 20250619
  27. OMEPRAZOLE [Concomitant]
     Active Substance: OMEPRAZOLE
     Dosage: 10 MILLIGRAM, AM (ONCE A DAY IN THE MORNING)
     Dates: start: 20250318
  28. OMEPRAZOLE [Concomitant]
     Active Substance: OMEPRAZOLE
     Dosage: 10 MILLIGRAM, AM (ONCE A DAY IN THE MORNING)
     Dates: start: 20250617
  29. OMEPRAZOLE [Concomitant]
     Active Substance: OMEPRAZOLE
     Dosage: 10 MILLIGRAM, AM (ONCE A DAY IN THE MORNING)
     Dates: start: 20250618
  30. OMEPRAZOLE [Concomitant]
     Active Substance: OMEPRAZOLE
     Dosage: 10 MILLIGRAM, AM (ONCE A DAY IN THE MORNING)
     Dates: start: 20250619
  31. OMEPRAZOLE [Concomitant]
     Active Substance: OMEPRAZOLE
     Dosage: 10 MILLIGRAM, AM (ONCE A DAY IN THE MORNING)
     Dates: start: 20250620
  32. CALCIUM CARBONATE\SODIUM ALGINATE\SODIUM BICARBONATE [Concomitant]
     Active Substance: CALCIUM CARBONATE\SODIUM ALGINATE\SODIUM BICARBONATE
     Indication: Dyspepsia
     Dates: start: 20250105, end: 20250304
  33. SYMBICORT [Concomitant]
     Active Substance: BUDESONIDE\FORMOTEROL FUMARATE DIHYDRATE
     Indication: Asthma
     Dosage: 2 DOSAGE FORM, BID (2 PUFFS TWICE A DAY)
     Dates: start: 20230605

REACTIONS (5)
  - Lower respiratory tract infection [Recovered/Resolved]
  - Differential white blood cell count abnormal [Recovered/Resolved]
  - Eosinophil count decreased [Recovered/Resolved]
  - Monocyte count decreased [Recovered/Resolved]
  - Eosinophilia [Recovered/Resolved]

NARRATIVE: CASE EVENT DATE: 20250602
